FAERS Safety Report 9477987 (Version 1)
Quarter: 2013Q3

REPORT INFORMATION
  Report Type: Spontaneous
  Country: AU (occurrence: AU)
  Receive Date: 20130827
  Receipt Date: 20130827
  Transmission Date: 20140515
  Serious: Yes (Other)
  Sender: FDA-Public Use
  Company Number: PHHY2013AU092102

PATIENT
  Age: 25 Year
  Sex: Female

DRUGS (2)
  1. EVEROLIMUS [Suspect]
     Indication: LYMPHANGIOLEIOMYOMATOSIS
  2. EVEROLIMUS [Suspect]
     Indication: OFF LABEL USE

REACTIONS (4)
  - Appendicitis [Unknown]
  - Upper respiratory tract infection [Unknown]
  - Ear pain [Unknown]
  - Influenza [Unknown]
